FAERS Safety Report 7955257-7 (Version None)
Quarter: 2011Q4

REPORT INFORMATION
  Report Type: 
  Country: None (occurrence: None)
  Receive Date: 20111202
  Receipt Date: 20111010
  Transmission Date: 20120403
  Serious: No
  Sender: FDA-Public Use
  Company Number: US-BAYER-2011-098586

PATIENT
  Age: 81 Year
  Sex: Male
  Weight: 91.61 kg

DRUGS (9)
  1. HYPNOTICS AND SEDATIVES [Concomitant]
  2. ALEVE (CAPLET) [Suspect]
     Indication: ARTHRITIS
     Dosage: 2 DF, QD
     Route: 048
     Dates: start: 20090101
  3. ATENOLOL [Concomitant]
  4. FISH OIL [Concomitant]
  5. ASPIRIN [Concomitant]
  6. LOVASTATIN [Concomitant]
  7. STOOL SOFTENER [Concomitant]
  8. PRILOSEC [Concomitant]
  9. ONE A DAY MEN'S 50 PLUS ADVANTAGE [Concomitant]

REACTIONS (1)
  - NO ADVERSE EVENT [None]
